FAERS Safety Report 5798295-5 (Version None)
Quarter: 2008Q3

REPORT INFORMATION
  Report Type: 
  Country: None (occurrence: None)
  Receive Date: 20080702
  Receipt Date: 20080630
  Transmission Date: 20090109
  Serious: Yes (Hospitalization)
  Sender: FDA-Public Use
  Company Number: CN-JNJFOC-20080605552

PATIENT
  Age: 2 Year
  Sex: Male
  Weight: 15 kg

DRUGS (1)
  1. DEXTROMETHORPHAN HYDROBROMIDE [Suspect]
     Indication: ACCIDENTAL EXPOSURE
     Dosage: 80 ML
     Route: 048

REACTIONS (11)
  - ACCIDENTAL DRUG INTAKE BY CHILD [None]
  - ACCIDENTAL OVERDOSE [None]
  - AGITATION [None]
  - ATAXIA [None]
  - BLOOD PRESSURE DECREASED [None]
  - DYSSTASIA [None]
  - FALL [None]
  - INCOHERENT [None]
  - PETECHIAE [None]
  - SUDDEN ONSET OF SLEEP [None]
  - THINKING ABNORMAL [None]
